FAERS Safety Report 8046315 (Version 2)
Quarter: 2013Q1

REPORT INFORMATION
  Report Type: Spontaneous
  Country: BR (occurrence: BR)
  Receive Date: 20110720
  Receipt Date: 20130107
  Transmission Date: 20140127
  Serious: Yes (Hospitalization)
  Sender: FDA-Public Use
  Company Number: BR-ASTRAZENECA-2011SE42293

PATIENT
  Sex: Female
  Weight: 95 kg

DRUGS (8)
  1. ATACAND [Suspect]
     Indication: HYPERTENSION
     Route: 048
     Dates: start: 2001, end: 201107
  2. ATACAND [Suspect]
     Indication: HYPERTENSION
     Route: 048
     Dates: start: 201107
  3. ATACAND HCT [Suspect]
     Indication: HYPERTENSION
     Dosage: 8/12.5 MG, EVERY OTHER DAY
     Route: 048
     Dates: start: 201107
  4. ATACAND HCT [Suspect]
     Indication: HYPERTENSION
     Dosage: 16/12.5 MG
     Route: 048
  5. SYNTHROID [Concomitant]
     Indication: THYROID DISORDER
     Route: 048
     Dates: start: 2006
  6. SUPAN [Concomitant]
     Indication: SEDATIVE THERAPY
     Route: 048
  7. LISADOR [Concomitant]
     Indication: BACK PAIN
     Dosage: PRN
     Route: 048
  8. LISADOR [Concomitant]
     Indication: OSTEOARTHRITIS
     Dosage: PRN
     Route: 048

REACTIONS (6)
  - Thyroid neoplasm [Recovered/Resolved]
  - Local swelling [Recovered/Resolved]
  - Local swelling [Recovered/Resolved]
  - Local swelling [Recovered/Resolved]
  - Hypertension [Unknown]
  - Off label use [Recovered/Resolved]
